FAERS Safety Report 13244391 (Version 3)
Quarter: 2018Q1

REPORT INFORMATION
  Report Type: Report from Study
  Country: BE (occurrence: BE)
  Receive Date: 20170217
  Receipt Date: 20180206
  Transmission Date: 20180508
  Serious: Yes (Hospitalization, Other)
  Sender: FDA-Public Use
  Company Number: BE-SHIRE-BE201702781

PATIENT
  Age: 6 Year
  Sex: Male
  Weight: 17.3 kg

DRUGS (8)
  1. URSOCHOL [Concomitant]
     Active Substance: URSODIOL
     Indication: PROPHYLAXIS
     Dosage: 150 MG, 2X/DAY:BID
     Route: 048
     Dates: start: 20110401
  2. NEXIAM                             /01479302/ [Concomitant]
     Active Substance: ESOMEPRAZOLE MAGNESIUM
     Indication: PROPHYLAXIS
     Dosage: 10 MG, 1X/DAY:QD
     Route: 048
     Dates: start: 20120911
  3. DAVITAMON [Concomitant]
     Indication: SUPPLEMENTATION THERAPY
     Dosage: 1 DF, 1X/DAY:QD
     Route: 048
     Dates: start: 20151208
  4. TEDUGLUTIDE [Suspect]
     Active Substance: TEDUGLUTIDE
     Indication: SHORT-BOWEL SYNDROME
     Dosage: 0.05 MG/KG, 1X/DAY:QD
     Route: 058
     Dates: start: 20160928
  5. QUESTRAN [Concomitant]
     Active Substance: CHOLESTYRAMINE
     Indication: PROPHYLAXIS
     Dosage: 500 MG, 2X/DAY:BID
     Route: 048
     Dates: start: 20110902
  6. VITAMIN D3 [Concomitant]
     Active Substance: CHOLECALCIFEROL
     Indication: SUPPLEMENTATION THERAPY
     Dosage: 1 DF, 1X/DAY:QD
     Route: 048
     Dates: start: 20160531
  7. IRON [Concomitant]
     Active Substance: IRON
     Indication: SUPPLEMENTATION THERAPY
     Dosage: 5 ML, 1X/DAY:QD
     Route: 048
     Dates: start: 20151208
  8. PENTASA [Concomitant]
     Active Substance: MESALAMINE
     Indication: COLITIS
     Dosage: 500 MG, 2X/DAY:BID
     Route: 048
     Dates: start: 20150612

REACTIONS (1)
  - Haematemesis [Recovered/Resolved]

NARRATIVE: CASE EVENT DATE: 20170206
